FAERS Safety Report 9170396 (Version 1)
Quarter: 2013Q1

REPORT INFORMATION
  Report Type: Spontaneous
  Country: IT (occurrence: IT)
  Receive Date: 20130319
  Receipt Date: 20130319
  Transmission Date: 20140127
  Serious: Yes (Hospitalization)
  Sender: FDA-Public Use
  Company Number: IT-JNJFOC-20130306610

PATIENT
  Age: 58 Year
  Sex: Male

DRUGS (2)
  1. REMICADE [Suspect]
     Indication: COLITIS ULCERATIVE
     Route: 042
     Dates: start: 20130221
  2. REMICADE [Suspect]
     Indication: COLITIS ULCERATIVE
     Dosage: SECOND INFUSION
     Route: 042
     Dates: start: 20130307

REACTIONS (2)
  - Ischaemic stroke [Not Recovered/Not Resolved]
  - Nervous system disorder [Not Recovered/Not Resolved]
